FAERS Safety Report 5506162-7 (Version None)
Quarter: 2007Q4

REPORT INFORMATION
  Report Type: 
  Country: None (occurrence: None)
  Receive Date: 20071102
  Receipt Date: 20071102
  Transmission Date: 20080405
  Serious: Yes (Hospitalization)
  Sender: FDA-Public Use
  Company Number: None

PATIENT
  Age: 19 Year
  Sex: Female

DRUGS (5)
  1. MOTRIN [Suspect]
     Indication: CONCUSSION
     Dosage: 800 MG Q4 PO
     Route: 048
     Dates: start: 20060919, end: 20060925
  2. MOTRIN [Suspect]
     Indication: HEADACHE
     Dosage: 800 MG Q4 PO
     Route: 048
     Dates: start: 20060919, end: 20060925
  3. ALBUTEROL [Concomitant]
  4. BENADRYL [Concomitant]
  5. LEVAQUIN [Concomitant]

REACTIONS (1)
  - RENAL FAILURE ACUTE [None]
